FAERS Safety Report 4845776-4 (Version None)
Quarter: 2005Q4

REPORT INFORMATION
  Report Type: 
  Country: None (occurrence: None)
  Receive Date: 20051206
  Receipt Date: 20051129
  Transmission Date: 20060501
  Serious: Yes (Other)
  Sender: FDA-Public Use
  Company Number: JP-BRISTOL-MYERS SQUIBB COMPANY-13204789

PATIENT
  Age: 28 Year
  Sex: Male

DRUGS (2)
  1. IFOMIDE [Suspect]
     Indication: SYNOVIAL SARCOMA
     Dates: start: 20051025, end: 20051025
  2. DOXORUBICIN [Suspect]
     Indication: SYNOVIAL SARCOMA
     Dates: start: 20051025, end: 20051026

REACTIONS (1)
  - ENCEPHALOPATHY [None]
